APPROVED DRUG PRODUCT: CITALOPRAM HYDROBROMIDE
Active Ingredient: CITALOPRAM HYDROBROMIDE
Strength: EQ 20MG BASE
Dosage Form/Route: TABLET, ORALLY DISINTEGRATING;ORAL
Application: N021763 | Product #002
Applicant: BIOVAIL LABORATORIES INTERNATIONAL SRL
Approved: Dec 20, 2005 | RLD: Yes | RS: No | Type: DISCN